FAERS Safety Report 15808287 (Version 2)
Quarter: 2019Q3

REPORT INFORMATION
  Report Type: Spontaneous
  Country: CO (occurrence: CO)
  Receive Date: 20190110
  Receipt Date: 20190930
  Transmission Date: 20191004
  Serious: Yes (Death, Other)
  Sender: FDA-Public Use
  Company Number: CO-PFIZER INC-2018405745

PATIENT
  Age: 58 Year
  Sex: Female

DRUGS (1)
  1. SUTENT [Suspect]
     Active Substance: SUNITINIB MALATE
     Indication: RENAL CANCER METASTATIC
     Dosage: 50 MG, CYCLIC (14 DAYS AND REST FOR 7 DAYS)
     Route: 048
     Dates: start: 20180720, end: 201811

REACTIONS (3)
  - Death [Fatal]
  - Asphyxia [Unknown]
  - Fatigue [Unknown]

NARRATIVE: CASE EVENT DATE: 20190712
